FAERS Safety Report 5347322-8 (Version None)
Quarter: 2007Q2

REPORT INFORMATION
  Report Type: 
  Country: None (occurrence: None)
  Receive Date: 20070507
  Receipt Date: 20070220
  Transmission Date: 20071010
  Serious: Yes (Hospitalization, Other)
  Sender: FDA-Public Use
  Company Number: 34597

PATIENT
  Age: 69 Year
  Sex: Female

DRUGS (8)
  1. ADRIAMYCIN PFS [Suspect]
     Indication: BREAST CANCER
     Dosage: 110MG
     Dates: start: 20061218
  2. ELAVIL [Concomitant]
  3. SYNTHROID [Concomitant]
  4. XANAX [Concomitant]
  5. ZANTAC OTC (RANITIDINE HYDROCHLORIDE) [Concomitant]
  6. LOPRESSOR [Concomitant]
  7. ZOFRAN [Concomitant]
  8. ZOCOR [Concomitant]

REACTIONS (3)
  - HEADACHE [None]
  - NAUSEA [None]
  - VOMITING [None]
